FAERS Safety Report 17036317 (Version 1)
Quarter: 2019Q4

REPORT INFORMATION
  Report Type: Spontaneous
  Country: US (occurrence: US)
  Receive Date: 20191015
  Receipt Date: 20191015
  Transmission Date: 20200122
  Serious: Yes (Hospitalization)
  Sender: FDA-Public Use
  Company Number: None

PATIENT
  Age: 48 Year
  Sex: Male

DRUGS (17)
  1. PANTOPRAZOLE [Concomitant]
     Active Substance: PANTOPRAZOLE
  2. SODIUM BICAR [Concomitant]
  3. VITAMIN D [Concomitant]
     Active Substance: VITAMIN D NOS
  4. CEFUROXIME. [Concomitant]
     Active Substance: CEFUROXIME
  5. ISOSORB MONO [Concomitant]
     Active Substance: ISOSORBIDE MONONITRATE
  6. LISINOPRIL. [Concomitant]
     Active Substance: LISINOPRIL
  7. ATOPRVASTATIN [Concomitant]
  8. CARVEDILOL. [Concomitant]
     Active Substance: CARVEDILOL
  9. FISH OIL [Concomitant]
     Active Substance: FISH OIL
  10. FUROSEMIDE. [Concomitant]
     Active Substance: FUROSEMIDE
  11. ALLOPURUNOL [Concomitant]
  12. HYDRALAZINE [Concomitant]
     Active Substance: HYDRALAZINE HYDROCHLORIDE
  13. LIPITOR [Concomitant]
     Active Substance: ATORVASTATIN CALCIUM
  14. TACROLIMUS CAP [Suspect]
     Active Substance: TACROLIMUS
     Indication: RENAL TRANSPLANT
     Route: 048
     Dates: start: 20111013
  15. MYCOPHENOLATE 250MG [Suspect]
     Active Substance: MYCOPHENOLIC ACID
     Indication: RENAL TRANSPLANT
     Route: 048
     Dates: start: 20111013
  16. PREDNISONE. [Concomitant]
     Active Substance: PREDNISONE
  17. PROTONIX [Concomitant]
     Active Substance: PANTOPRAZOLE SODIUM

REACTIONS (1)
  - Dental operation [None]

NARRATIVE: CASE EVENT DATE: 20191006
